FAERS Safety Report 11777211 (Version 1)
Quarter: 2015Q4

REPORT INFORMATION
  Report Type: Spontaneous
  Country: US (occurrence: US)
  Receive Date: 20151125
  Receipt Date: 20151125
  Transmission Date: 20160304
  Serious: Yes (Other)
  Sender: FDA-Public Use
  Company Number: US-PFIZER INC-2015398696

PATIENT
  Age: 37 Year
  Sex: Female
  Weight: 95.25 kg

DRUGS (2)
  1. GEODON [Suspect]
     Active Substance: ZIPRASIDONE HYDROCHLORIDE\ZIPRASIDONE MESYLATE
     Indication: INSOMNIA
  2. GEODON [Suspect]
     Active Substance: ZIPRASIDONE HYDROCHLORIDE\ZIPRASIDONE MESYLATE
     Indication: ANXIETY
     Dosage: 40 MG, UNK

REACTIONS (11)
  - Headache [Unknown]
  - Asthenia [Unknown]
  - Muscle disorder [Unknown]
  - Personality change [Unknown]
  - Eye disorder [Unknown]
  - Confusional state [Unknown]
  - Fatigue [Unknown]
  - Weight increased [Unknown]
  - Malaise [Unknown]
  - Sedation [Unknown]
  - Feeling abnormal [Unknown]
